FAERS Safety Report 8139145-1 (Version None)
Quarter: 2012Q1

REPORT INFORMATION
  Report Type: 
  Country: None (occurrence: None)
  Receive Date: 20120215
  Receipt Date: 20120208
  Transmission Date: 20120608
  Serious: Yes (Hospitalization, Disabling)
  Sender: FDA-Public Use
  Company Number: US-BAYER-201032331NA

PATIENT
  Age: 16 Year
  Sex: Female

DRUGS (8)
  1. VICODIN [Concomitant]
     Route: 048
  2. PROVERA [Concomitant]
  3. YAZ [Suspect]
     Dosage: UNK
     Route: 048
     Dates: start: 20070201, end: 20080731
  4. LEVOTHYROXINE SODIUM [Concomitant]
     Route: 048
  5. METHYLPHENIDATE [Concomitant]
     Route: 048
  6. ORAL CONTRACEPTIVE NOS [Concomitant]
     Route: 048
  7. YASMIN [Suspect]
     Dosage: UNK
     Dates: start: 20070201, end: 20080731
  8. METFORMIN HCL [Concomitant]
     Route: 048

REACTIONS (7)
  - HEMIPLEGIA [None]
  - ABASIA [None]
  - IMPAIRED HEALING [None]
  - APHASIA [None]
  - CEREBROVASCULAR ACCIDENT [None]
  - ANXIETY [None]
  - THERMOANAESTHESIA [None]
